FAERS Safety Report 22399720 (Version 1)
Quarter: 2023Q2

REPORT INFORMATION
  Report Type: Spontaneous
  Country: GB (occurrence: None)
  Receive Date: 20230602
  Receipt Date: 20230602
  Transmission Date: 20230721
  Serious: Yes (Other)
  Sender: FDA-Public Use
  Company Number: 2023A126199

PATIENT
  Age: 71 Year

DRUGS (7)
  1. QUETIAPINE [Suspect]
     Active Substance: QUETIAPINE
     Indication: Product used for unknown indication
     Dosage: 400MG OM + 200MG ON
     Route: 048
  2. ATORVASTATIN [Concomitant]
     Active Substance: ATORVASTATIN
  3. BENDROFLUMETHIAZIDE [Concomitant]
     Active Substance: BENDROFLUMETHIAZIDE
     Dosage: ONE TO BE TAKEN EACH MORNING
  4. CHOLECALCIFEROL [Concomitant]
     Active Substance: CHOLECALCIFEROL
     Dosage: ONE TO BE TAKEN IN THE MORNING
  5. PERINDOPRIL [Concomitant]
     Active Substance: PERINDOPRIL
     Dosage: ONE TO BE TAKEN EACH MORNING BEFORE FOOD
  6. THIAMINE [Concomitant]
     Active Substance: THIAMINE
     Dosage: ONE TO BE TAKEN TWICE A DAY
  7. VALPROIC ACID [Concomitant]
     Active Substance: VALPROIC ACID

REACTIONS (1)
  - Cerebrovascular accident [Unknown]
